FAERS Safety Report 4806988-9 (Version None)
Quarter: 2005Q4

REPORT INFORMATION
  Report Type: 
  Country: None (occurrence: None)
  Receive Date: 20051024
  Receipt Date: 20051012
  Transmission Date: 20060501
  Serious: Yes (Hospitalization)
  Sender: FDA-Public Use
  Company Number: US-JNJFOC-20051002883

PATIENT
  Sex: Female
  Weight: 64.41 kg

DRUGS (6)
  1. REMICADE [Suspect]
     Indication: CROHN'S DISEASE
     Route: 042
  2. ENTOCORT [Concomitant]
     Indication: CROHN'S DISEASE
  3. ACIPHEX [Concomitant]
     Indication: CROHN'S DISEASE
  4. ZETIA [Concomitant]
     Indication: BLOOD CHOLESTEROL INCREASED
  5. AMARYL [Concomitant]
     Indication: DIABETES MELLITUS
  6. IMODIUM [Concomitant]
     Indication: CROHN'S DISEASE

REACTIONS (7)
  - ARTHRALGIA [None]
  - DEHYDRATION [None]
  - DIARRHOEA [None]
  - NAUSEA [None]
  - PANCREATITIS [None]
  - SYSTEMIC LUPUS ERYTHEMATOSUS [None]
  - VOMITING [None]
